FAERS Safety Report 8896367 (Version 1)
Quarter: 2012Q4

REPORT INFORMATION
  Report Type: Spontaneous
  Country: US (occurrence: None)
  Receive Date: 20121107
  Receipt Date: 20121107
  Transmission Date: 20130627
  Serious: Yes (Life-Threatening, Hospitalization)
  Sender: FDA-Public Use
  Company Number: None

PATIENT
  Age: 32 Year
  Sex: Female
  Weight: 79.38 kg

DRUGS (5)
  1. LAMICTAL [Suspect]
     Indication: DEPRESSION
     Dosage: 25mg
     Dates: start: 20120813, end: 20120826
  2. LAMICTAL [Suspect]
     Indication: ANXIETY
     Dosage: 25mg
     Dates: start: 20120813, end: 20120826
  3. ZOLOFT [Concomitant]
  4. KLONOPIN [Concomitant]
  5. TOPAMAX [Concomitant]

REACTIONS (1)
  - Meningitis aseptic [None]
